FAERS Safety Report 25368551 (Version 1)
Quarter: 2025Q2

REPORT INFORMATION
  Report Type: Spontaneous
  Country: US (occurrence: None)
  Receive Date: 20250527
  Receipt Date: 20250527
  Transmission Date: 20250716
  Serious: No
  Sender: FDA-CTU
  Company Number: None

PATIENT
  Age: 52 Year
  Sex: Male
  Weight: 94.5 kg

DRUGS (5)
  1. TESTOSTERONE CYPIONATE [Suspect]
     Active Substance: TESTOSTERONE CYPIONATE
     Indication: Blood testosterone decreased
     Dosage: 1 INJECTION(S) 2 A WEEK SUBCUTANEOUS
     Route: 058
  2. TESTOSTERONE CYPIONATE [Suspect]
     Active Substance: TESTOSTERONE CYPIONATE
     Indication: Pituitary tumour
  3. CABERGOLINE [Concomitant]
     Active Substance: CABERGOLINE
  4. VITAMIN D [Concomitant]
     Active Substance: VITAMIN D NOS
  5. C CREATINE [Concomitant]

REACTIONS (2)
  - Injection site mass [None]
  - Product physical consistency issue [None]

NARRATIVE: CASE EVENT DATE: 20250305
